FAERS Safety Report 24115985 (Version 2)
Quarter: 2024Q3

REPORT INFORMATION
  Report Type: Spontaneous
  Country: US (occurrence: US)
  Receive Date: 20240722
  Receipt Date: 20240909
  Transmission Date: 20241017
  Serious: Yes (Other)
  Sender: UCB
  Company Number: US-UCBSA-2024036619

PATIENT
  Sex: Female

DRUGS (1)
  1. RYSTIGGO [Suspect]
     Active Substance: ROZANOLIXIZUMAB-NOLI
     Indication: Myasthenia gravis
     Dosage: 560 MILLIGRAM, WEEKLY (QW)
     Route: 058
     Dates: end: 20240620

REACTIONS (2)
  - Seizure [Recovering/Resolving]
  - Adverse event [Recovering/Resolving]
